FAERS Safety Report 5163632-1 (Version None)
Quarter: 2006Q4

REPORT INFORMATION
  Report Type: 
  Country: None (occurrence: None)
  Receive Date: 20061204
  Receipt Date: 20061128
  Transmission Date: 20070319
  Serious: Yes (Other)
  Sender: FDA-Public Use
  Company Number: US-GLAXOSMITHKLINE-A0628938A

PATIENT
  Age: 51 Year
  Sex: Female

DRUGS (6)
  1. COMMIT [Suspect]
     Dosage: 4MG FIFTEEN TIMES PER DAY
     Route: 002
     Dates: start: 20040201, end: 20060801
  2. NICORETTE (MINT) [Suspect]
     Dosage: 4MG SEE DOSAGE TEXT
     Route: 002
     Dates: start: 20040101, end: 20060801
  3. NICORETTE (MINT) [Suspect]
     Route: 002
     Dates: start: 20061121
  4. NICORETTE (MINT) [Suspect]
     Dates: start: 20061128
  5. PREMARIN [Concomitant]
  6. FOSAMAX [Concomitant]

REACTIONS (5)
  - DEPENDENCE [None]
  - FATIGUE [None]
  - INTENTIONAL DRUG MISUSE [None]
  - PHARYNGOLARYNGEAL PAIN [None]
  - POSTNASAL DRIP [None]
